FAERS Safety Report 10687297 (Version 1)
Quarter: 2014Q4

REPORT INFORMATION
  Report Type: Spontaneous
  Country: US (occurrence: None)
  Receive Date: 20141230
  Receipt Date: 20141230
  Transmission Date: 20150529
  Serious: Yes (Hospitalization)
  Sender: FDA-Public Use
  Company Number: None

PATIENT
  Age: 88 Year
  Sex: Female
  Weight: 57.15 kg

DRUGS (1)
  1. BEVACIZUMAB [Suspect]
     Active Substance: BEVACIZUMAB
     Indication: UTERINE CANCER
     Dosage: EVERY 3 WEEKS
     Route: 042
     Dates: start: 20140915, end: 20141208

REACTIONS (1)
  - Speech disorder [None]

NARRATIVE: CASE EVENT DATE: 20141228
